FAERS Safety Report 5420531-5 (Version None)
Quarter: 2007Q3

REPORT INFORMATION
  Report Type: 
  Country: None (occurrence: None)
  Receive Date: 20070821
  Receipt Date: 20070612
  Transmission Date: 20080115
  Serious: No
  Sender: FDA-Public Use
  Company Number: US-KINGPHARMUSA00001-K200700722

PATIENT

DRUGS (4)
  1. CYTOMEL [Suspect]
     Indication: AUTOIMMUNE THYROIDITIS
     Route: 048
     Dates: start: 20040101, end: 20060101
  2. CYTOMEL [Suspect]
     Dosage: 100 MCG, BID
     Route: 048
     Dates: start: 20060101
  3. CYTOMEL [Suspect]
     Dosage: 50 MCG, BID
     Dates: start: 20070606, end: 20070606
  4. CYTOMEL [Suspect]
     Dosage: 100 MCG, BID
     Dates: start: 20070607

REACTIONS (5)
  - BLOOD THYROID STIMULATING HORMONE INCREASED [None]
  - FEELING COLD [None]
  - HYPERTHYROIDISM [None]
  - LOSS OF CONTROL OF LEGS [None]
  - MUSCLE SPASMS [None]
